FAERS Safety Report 5110257-X (Version None)
Quarter: 2006Q3

REPORT INFORMATION
  Report Type: 
  Country: None (occurrence: None)
  Receive Date: 20060921
  Receipt Date: 20060915
  Transmission Date: 20061208
  Serious: Yes (Life-Threatening, Hospitalization)
  Sender: FDA-Public Use
  Company Number: 463040

PATIENT
  Age: 83 Year
  Sex: Male

DRUGS (11)
  1. CARVEDILOL [Suspect]
     Indication: MYOCARDIAL INFARCTION
     Route: 048
     Dates: start: 20041217
  2. HUMACART [Suspect]
     Dosage: 16IU PER DAY
     Route: 058
     Dates: start: 20030709
  3. LASIX [Concomitant]
     Dates: start: 20030723
  4. MICARDIS [Concomitant]
     Dates: start: 20030723
  5. MUCODYNE [Concomitant]
     Dates: start: 20040908
  6. MAGNESIUM OXIDE [Concomitant]
     Dates: start: 20050216
  7. SALOBEL [Concomitant]
     Dates: start: 20041027
  8. FERO-GRADUMET [Concomitant]
     Dates: start: 20041027
  9. ASPIRIN [Concomitant]
     Dates: start: 20030723
  10. OMEPRAZOLE [Concomitant]
     Dates: start: 20030723
  11. DIART [Concomitant]
     Dates: start: 20040918

REACTIONS (2)
  - DEPRESSED LEVEL OF CONSCIOUSNESS [None]
  - HYPOGLYCAEMIA [None]
